FAERS Safety Report 11616835 (Version 3)
Quarter: 2016Q3

REPORT INFORMATION
  Report Type: Spontaneous
  Country: US (occurrence: US)
  Receive Date: 20151009
  Receipt Date: 20160803
  Transmission Date: 20161109
  Serious: Yes (Other)
  Sender: FDA-Public Use
  Company Number: US-BAYER-2015-434333

PATIENT
  Age: 39 Year
  Sex: Female
  Weight: 57.14 kg

DRUGS (2)
  1. LEVAQUIN [Suspect]
     Active Substance: LEVOFLOXACIN
     Indication: INFECTION
     Dosage: UNK
     Dates: start: 2010
  2. AVELOX [Suspect]
     Active Substance: MOXIFLOXACIN HYDROCHLORIDE
     Indication: SINUSITIS
     Dosage: 1 DF, OM
     Dates: start: 20110616

REACTIONS (19)
  - Adverse drug reaction [None]
  - Gait disturbance [None]
  - Tendon pain [None]
  - Skin injury [None]
  - Nervous system disorder [None]
  - Toxicity to various agents [None]
  - Emotional distress [None]
  - Musculoskeletal disorder [None]
  - Neuralgia [None]
  - Coagulopathy [None]
  - Mental disorder [None]
  - Cardiovascular disorder [None]
  - Anxiety [None]
  - Asthenia [None]
  - Tendonitis [None]
  - Neuropathy peripheral [None]
  - Activities of daily living impaired [None]
  - Injury [None]
  - Pain [None]

NARRATIVE: CASE EVENT DATE: 201106
